FAERS Safety Report 6971713-2 (Version None)
Quarter: 2010Q3

REPORT INFORMATION
  Report Type: 
  Country: None (occurrence: None)
  Receive Date: 20100908
  Receipt Date: 20100609
  Transmission Date: 20110219
  Serious: No
  Sender: FDA-Public Use
  Company Number: US-PFIZER INC-2010073279

PATIENT
  Sex: Female
  Weight: 49.887 kg

DRUGS (2)
  1. NARDIL [Suspect]
     Indication: DEPRESSION
     Dosage: UNK
     Route: 048
     Dates: start: 19870701
  2. KLONOPIN [Concomitant]
     Dosage: UNK

REACTIONS (2)
  - DYSPNOEA [None]
  - HYPERSENSITIVITY [None]
